FAERS Safety Report 4264896-9 (Version None)
Quarter: 2004Q1

REPORT INFORMATION
  Report Type: 
  Country: None (occurrence: None)
  Receive Date: 20040105
  Receipt Date: 20031223
  Transmission Date: 20041129
  Serious: Yes (Hospitalization)
  Sender: FDA-Public Use
  Company Number: 200322980GDDC

PATIENT
  Age: 76 Year
  Sex: Female

DRUGS (2)
  1. MINIRIN [Suspect]
     Indication: INCONTINENCE
     Dosage: 20 UG QD IN
     Dates: start: 20030615, end: 20030925
  2. MINIRIN [Suspect]
     Indication: INCONTINENCE
     Dosage: 0.1 MG QD PO
     Route: 048
     Dates: start: 20030615, end: 20030716

REACTIONS (10)
  - APHASIA [None]
  - BRAIN OEDEMA [None]
  - CONFUSIONAL STATE [None]
  - DIFFICULTY IN WALKING [None]
  - FEELING ABNORMAL [None]
  - HYPONATRAEMIA [None]
  - LOSS OF CONSCIOUSNESS [None]
  - MUSCLE CRAMP [None]
  - SYNCOPE [None]
  - VOMITING [None]
